FAERS Safety Report 9602046 (Version 5)
Quarter: 2014Q1

REPORT INFORMATION
  Report Type: Spontaneous
  Country: US (occurrence: US)
  Receive Date: 20131007
  Receipt Date: 20140306
  Transmission Date: 20141002
  Serious: Yes (Hospitalization, Other)
  Sender: FDA-Public Use
  Company Number: US-009507513-1309USA014309

PATIENT
  Sex: Female
  Weight: 90.7 kg

DRUGS (7)
  1. FOSAMAX [Suspect]
     Indication: OSTEOPENIA
     Dosage: UNK
     Route: 048
     Dates: start: 1995, end: 2012
  2. BONIVA [Suspect]
     Indication: OSTEOPENIA
     Dosage: 150 MG, QM
     Route: 048
     Dates: start: 20090316, end: 201006
  3. ALENDRONATE SODIUM [Suspect]
     Indication: OSTEOPENIA
     Dosage: 35 MG, UNK
     Route: 048
     Dates: start: 20100416, end: 201210
  4. ALENDRONATE SODIUM [Suspect]
     Dosage: 70 MG, UNK
     Route: 048
     Dates: start: 20100416, end: 201210
  5. CALCIUM (UNSPECIFIED) (+) VITAMIN D (UNSPECIFIED) [Concomitant]
     Indication: OSTEOPENIA
     Dosage: UNK
  6. SYNTHROID [Concomitant]
     Indication: HYPOTHYROIDISM
     Dosage: UNK
     Dates: start: 1978
  7. LEVOTHYROXINE SODIUM [Concomitant]
     Indication: HYPOTHYROIDISM
     Dosage: UNK
     Dates: start: 1970

REACTIONS (46)
  - Femur fracture [Recovered/Resolved]
  - Intramedullary rod insertion [Unknown]
  - Humerus fracture [Unknown]
  - Hysterectomy [Unknown]
  - Ureteric repair [Unknown]
  - Gastric bypass [Unknown]
  - Low turnover osteopathy [Unknown]
  - Rib fracture [Unknown]
  - Vascular operation [Unknown]
  - Sciatic nerve injury [Unknown]
  - Bone loss [Unknown]
  - Medical device removal [Unknown]
  - Dental implantation [Unknown]
  - Oral infection [Unknown]
  - Tooth loss [Unknown]
  - Exposed bone in jaw [Unknown]
  - Oral pain [Unknown]
  - Facial bones fracture [Unknown]
  - Tooth extraction [Unknown]
  - Dental caries [Unknown]
  - Abscess oral [Unknown]
  - Device failure [Unknown]
  - Periodontal disease [Unknown]
  - Gingival disorder [Unknown]
  - Vitamin D deficiency [Unknown]
  - Calcium deficiency [Unknown]
  - Bundle branch block left [Unknown]
  - Pelvic floor muscle weakness [Unknown]
  - Faecal incontinence [Unknown]
  - Spinal osteoarthritis [Unknown]
  - Osteoporosis [Unknown]
  - Hand fracture [Unknown]
  - Scapula fracture [Unknown]
  - Ilium fracture [Unknown]
  - Skull fractured base [Unknown]
  - Upper limb fracture [Unknown]
  - Cardiac murmur [Unknown]
  - Device breakage [Unknown]
  - Dental caries [Unknown]
  - Limb asymmetry [Unknown]
  - Oedema mouth [Unknown]
  - Back pain [Unknown]
  - Musculoskeletal pain [Unknown]
  - Drug ineffective [Unknown]
  - Arthralgia [Unknown]
  - Arthralgia [Unknown]
